FAERS Safety Report 15417195 (Version 1)
Quarter: 2018Q3

REPORT INFORMATION
  Report Type: Report from Study
  Country: US (occurrence: US)
  Receive Date: 20180924
  Receipt Date: 20180924
  Transmission Date: 20181010
  Serious: Yes (Hospitalization)
  Sender: FDA-Public Use
  Company Number: US-ROCHE-2186251

PATIENT
  Age: 65 Year
  Sex: Male
  Weight: 77 kg

DRUGS (2)
  1. ATEZOLIZUMAB. [Suspect]
     Active Substance: ATEZOLIZUMAB
     Indication: METASTATIC NEOPLASM
     Dosage: ON 29/AUG/2018, THE PATIENT RECEIVED THE MOST RECENT DOSE OF ATEZOLIZUMAB PRIOR TO THE ONSET
     Route: 042
     Dates: start: 20180807
  2. XL184 [Suspect]
     Active Substance: CABOZANTINIB
     Indication: METASTATIC NEOPLASM
     Dosage: 07 SEP 2018, THE PATIENT RECEIVED THE MOST RECENT DOSE OF CABOZANTINIB PRIOR TO THE ONSET OF THE EVE
     Route: 048
     Dates: start: 20180807, end: 20180907

REACTIONS (1)
  - Pulmonary embolism [Recovering/Resolving]

NARRATIVE: CASE EVENT DATE: 20180907
